FAERS Safety Report 25067014 (Version 3)
Quarter: 2025Q4

REPORT INFORMATION
  Report Type: Spontaneous
  Country: JP (occurrence: JP)
  Receive Date: 20250312
  Receipt Date: 20251126
  Transmission Date: 20260117
  Serious: Yes (Hospitalization, Other)
  Sender: JAZZ
  Company Number: JP-JAZZ PHARMACEUTICALS-2025-JP-006408

PATIENT
  Age: 22 Year
  Sex: Male
  Weight: 46 kg

DRUGS (10)
  1. DEFITELIO [Suspect]
     Active Substance: DEFIBROTIDE SODIUM
     Indication: Venoocclusive liver disease
     Dosage: UNK
     Dates: start: 20240310, end: 20240508
  2. BESPONSA [Suspect]
     Active Substance: INOTUZUMAB OZOGAMICIN
     Indication: Product used for unknown indication
     Dosage: UNK
  3. MELPHALAN [Suspect]
     Active Substance: MELPHALAN
     Indication: Product used for unknown indication
     Dosage: 140 MILLIGRAM PER SQUARE METER
  4. FUROSEMIDE [Suspect]
     Active Substance: FUROSEMIDE
     Indication: Urine output decreased
     Dosage: UNK
  5. POTASSIUM [Concomitant]
     Active Substance: POTASSIUM
     Indication: Hypokalaemia
  6. TACROLIMUS [Concomitant]
     Active Substance: TACROLIMUS
     Indication: Graft versus host disease
  7. METHOTREXATE [Concomitant]
     Active Substance: METHOTREXATE
     Indication: Graft versus host disease
  8. URSODIOL [Concomitant]
     Active Substance: URSODIOL
     Indication: Prophylaxis
     Dosage: 400 MILLIGRAM
  9. HEPARIN SODIUM [Concomitant]
     Active Substance: HEPARIN SODIUM
     Indication: Product used for unknown indication
     Dosage: 10 UNITS PER KILOGRAM PER HOUR
  10. PROSTAGLANDIN E1 [Concomitant]
     Active Substance: ALPROSTADIL
     Indication: Prophylaxis

REACTIONS (8)
  - Cardiac failure congestive [Recovered/Resolved]
  - Ventricular extrasystoles [Recovered/Resolved]
  - Engraftment syndrome [Recovering/Resolving]
  - Ascites [Unknown]
  - Oedema [Unknown]
  - Pleural effusion [Recovered/Resolved]
  - Orthopnoea [Unknown]
  - Hypernatraemia [Unknown]

NARRATIVE: CASE EVENT DATE: 20240301
